FAERS Safety Report 25364054 (Version 2)
Quarter: 2025Q2

REPORT INFORMATION
  Report Type: Report from Study
  Country: EG (occurrence: EG)
  Receive Date: 20250527
  Receipt Date: 20250529
  Transmission Date: 20250716
  Serious: Yes (Other)
  Sender: AMGEN
  Company Number: EG-AMGEN-EGYSL2025101669

PATIENT
  Age: 42 Year
  Sex: Female

DRUGS (1)
  1. VECTIBIX [Suspect]
     Active Substance: PANITUMUMAB
     Indication: Colorectal cancer
     Dosage: UNK, Q2WK
     Route: 065
     Dates: start: 202503

REACTIONS (10)
  - Gastric bypass reversal [Unknown]
  - Skin haemorrhage [Not Recovered/Not Resolved]
  - Abdominal discomfort [Unknown]
  - Acne pustular [Not Recovered/Not Resolved]
  - Acne [Unknown]
  - Alopecia [Not Recovered/Not Resolved]
  - Vomiting [Not Recovered/Not Resolved]
  - Feeling hot [Not Recovered/Not Resolved]
  - Burning sensation [Not Recovered/Not Resolved]
  - Incorrect dose administered [Unknown]

NARRATIVE: CASE EVENT DATE: 20250101
